FAERS Safety Report 6644397-0 (Version None)
Quarter: 2010Q1

REPORT INFORMATION
  Report Type: 
  Country: None (occurrence: None)
  Receive Date: 20100322
  Receipt Date: 20100313
  Transmission Date: 20100710
  Serious: Yes (Hospitalization)
  Sender: FDA-Public Use
  Company Number: ES-ROCHE-689000

PATIENT
  Sex: Female
  Weight: 92.7 kg

DRUGS (6)
  1. ACTEMRA [Suspect]
     Indication: RHEUMATOID ARTHRITIS
     Dosage: FORM: INFUSION
     Route: 042
     Dates: start: 20091112
  2. METHOTREXATE [Concomitant]
     Indication: RHEUMATOID ARTHRITIS
     Route: 048
     Dates: start: 20061130
  3. FOLIC ACID [Concomitant]
     Dosage: INDICATION: TREATMENT OF SECONDARY EFFECTS OF METHOTREXATE
     Route: 048
     Dates: start: 20061130
  4. INDOMETHACIN [Concomitant]
     Indication: RHEUMATOID ARTHRITIS
     Dosage: DOSE: 100-150; FREQUENCY: DAILY
     Route: 048
     Dates: start: 20011030
  5. RABEPRAZOL [Concomitant]
     Indication: PROPHYLAXIS
     Route: 048
     Dates: start: 20011030
  6. TRAMADOL [Concomitant]
     Indication: ANALGESIC THERAPY
     Route: 048
     Dates: start: 20091030

REACTIONS (1)
  - THROMBOPHLEBITIS SUPERFICIAL [None]
